FAERS Safety Report 8290301-1 (Version None)
Quarter: 2012Q2

REPORT INFORMATION
  Report Type: 
  Country: None (occurrence: None)
  Receive Date: 20120417
  Receipt Date: 20120403
  Transmission Date: 20120825
  Serious: Yes (Hospitalization)
  Sender: FDA-Public Use
  Company Number: PHHO2009DE07046

PATIENT
  Sex: Male
  Weight: 70 kg

DRUGS (3)
  1. METHYLPREDNISOLONE [Suspect]
     Indication: LIVER TRANSPLANT
     Dosage: OPEN-LABEL
     Route: 042
     Dates: start: 20090501
  2. EVEROLIMUS [Suspect]
     Indication: LIVER TRANSPLANT
     Dosage: 2 MG, UNK
     Route: 048
     Dates: start: 20090526
  3. TACROLIMUS [Suspect]
     Indication: LIVER TRANSPLANT
     Dosage: 1 MG, UNK
     Dates: start: 20090501

REACTIONS (4)
  - BLOOD ALKALINE PHOSPHATASE INCREASED [None]
  - GAMMA-GLUTAMYLTRANSFERASE INCREASED [None]
  - ASCITES [None]
  - BACTERIAL INFECTION [None]
